FAERS Safety Report 8492952-8 (Version None)
Quarter: 2012Q3

REPORT INFORMATION
  Report Type: 
  Country: None (occurrence: None)
  Receive Date: 20120706
  Receipt Date: 20120628
  Transmission Date: 20120928
  Serious: Yes (Hospitalization)
  Sender: FDA-Public Use
  Company Number: FR-GLAXOSMITHKLINE-B0811147A

PATIENT
  Age: 68 Year
  Sex: Male

DRUGS (7)
  1. PENTOXIFYLLINE [Suspect]
     Indication: THROMBOPHLEBITIS
     Dosage: 20MG UNKNOWN
     Route: 048
     Dates: start: 20120529, end: 20120608
  2. ARIXTRA [Suspect]
     Indication: THROMBOPHLEBITIS
     Route: 065
     Dates: start: 20120529, end: 20120608
  3. AUGMENTIN '125' [Suspect]
     Indication: THROMBOPHLEBITIS
     Route: 065
     Dates: start: 20120529, end: 20120608
  4. TENORMIN [Concomitant]
     Indication: PRODUCT USED FOR UNKNOWN INDICATION
     Dosage: 50MG PER DAY
     Route: 048
  5. NICARDIPINE HCL [Concomitant]
     Indication: PRODUCT USED FOR UNKNOWN INDICATION
     Dosage: 50MG PER DAY
     Route: 048
  6. LOSARTAN POTASSIUM AND HYDROCHLOROTHIAZIDE [Concomitant]
     Indication: PRODUCT USED FOR UNKNOWN INDICATION
     Route: 065
  7. NEXIUM [Concomitant]
     Indication: PRODUCT USED FOR UNKNOWN INDICATION
     Dosage: 20MG PER DAY
     Route: 048

REACTIONS (3)
  - INFLAMMATION [None]
  - VASCULAR PURPURA [None]
  - RENAL FAILURE ACUTE [None]
